FAERS Safety Report 6125350-2 (Version None)
Quarter: 2009Q1

REPORT INFORMATION
  Report Type: 
  Country: None (occurrence: None)
  Receive Date: 20090317
  Receipt Date: 20090305
  Transmission Date: 20090719
  Serious: Yes (Life-Threatening)
  Sender: FDA-Public Use
  Company Number: JHP200900058

PATIENT
  Age: 68 Year
  Sex: Female

DRUGS (6)
  1. DANTRIUM [Suspect]
     Indication: NEUROLEPTIC MALIGNANT SYNDROME
     Dosage: 25 MG, TID, ORAL
     Route: 048
     Dates: start: 20090213, end: 20090216
  2. NEODOPASOL (BENSERAZIDE HYDROCHLORIDE, LEVODOPA) [Concomitant]
  3. PERMAX /00613002/ (PERGOLIDE MESILATE) TABLET [Concomitant]
  4. ARTANE [Concomitant]
  5. FP (SELEGILINE HYDROCHLORIDE) [Concomitant]
  6. BI SIFROL (PRAMIPEXOLE DIHYDROCHLORIDE) TABLET [Concomitant]

REACTIONS (2)
  - HYPONATRAEMIA [None]
  - INAPPROPRIATE ANTIDIURETIC HORMONE SECRETION [None]
